FAERS Safety Report 7286910-9 (Version None)
Quarter: 2011Q1

REPORT INFORMATION
  Report Type: 
  Country: None (occurrence: None)
  Receive Date: 20110211
  Receipt Date: 20110202
  Transmission Date: 20110831
  Serious: Yes (Other)
  Sender: FDA-Public Use
  Company Number: US-BIOGENIDEC-2011BI004001

PATIENT
  Age: 58 Year
  Sex: Female

DRUGS (5)
  1. TYSABRI [Suspect]
     Indication: MULTIPLE SCLEROSIS
     Route: 042
     Dates: start: 20100205
  2. AVONEX [Concomitant]
     Route: 030
     Dates: start: 19970101
  3. TYSABRI [Suspect]
     Route: 042
     Dates: start: 20080506, end: 20090528
  4. AVONEX [Concomitant]
     Indication: MULTIPLE SCLEROSIS
     Route: 030
  5. BACLOFEN [Concomitant]
     Indication: MULTIPLE SCLEROSIS

REACTIONS (3)
  - URINARY TRACT INFECTION [None]
  - MUSCULOSKELETAL PAIN [None]
  - DEEP VEIN THROMBOSIS [None]
